FAERS Safety Report 13390803 (Version 1)
Quarter: 2017Q1

REPORT INFORMATION
  Report Type: Spontaneous
  Country: US (occurrence: US)
  Receive Date: 20170331
  Receipt Date: 20170331
  Transmission Date: 20170429
  Serious: No
  Sender: FDA-Public Use
  Company Number: None

PATIENT
  Age: 37 Year
  Sex: Male
  Weight: 83.25 kg

DRUGS (7)
  1. MS CONTIN [Concomitant]
     Active Substance: MORPHINE SULFATE
  2. ALPRAZOLAM. [Concomitant]
     Active Substance: ALPRAZOLAM
  3. RAMIPRIL. [Concomitant]
     Active Substance: RAMIPRIL
  4. RED/ELI IP/HYDROMORPH CONTIN(PF [Suspect]
     Active Substance: HYDROMORPHONE
     Indication: PAIN
     Dosage: ?          QUANTITY:1 CAPSULE(S);?
     Route: 048
  5. RISPERDAL [Concomitant]
     Active Substance: RISPERIDONE
  6. HYDROMORPH [Concomitant]
     Active Substance: HYDROMORPHONE
  7. LAMOTROGINE [Concomitant]
     Active Substance: LAMOTRIGINE

REACTIONS (20)
  - Hypoaesthesia [None]
  - Ulcer [None]
  - Seborrhoea [None]
  - Vision blurred [None]
  - Skin lesion [None]
  - Hair texture abnormal [None]
  - Visual impairment [None]
  - Fine motor skill dysfunction [None]
  - Back pain [None]
  - Product substitution issue [None]
  - Dry skin [None]
  - Drooling [None]
  - Rash pruritic [None]
  - Secretion discharge [None]
  - Fear [None]
  - Rash generalised [None]
  - Scab [None]
  - Skin odour abnormal [None]
  - Skin discolouration [None]
  - Renal pain [None]

NARRATIVE: CASE EVENT DATE: 20170324
